FAERS Safety Report 21879952 (Version 1)
Quarter: 2023Q1

REPORT INFORMATION
  Report Type: Spontaneous
  Country: US (occurrence: None)
  Receive Date: 20230117
  Receipt Date: 20230117
  Transmission Date: 20230417
  Serious: Yes (Other)
  Sender: FDA-Public Use
  Company Number: None

PATIENT
  Age: 60 Year
  Sex: Male

DRUGS (1)
  1. ZEPOSIA 7-DAY STARTER PACK [Suspect]
     Active Substance: OZANIMOD HYDROCHLORIDE
     Dates: start: 20230106, end: 20230115

REACTIONS (2)
  - Chest pain [None]
  - Dizziness [None]

NARRATIVE: CASE EVENT DATE: 20230117
